FAERS Safety Report 10583329 (Version 3)
Quarter: 2015Q2

REPORT INFORMATION
  Report Type: Spontaneous
  Country: US (occurrence: None)
  Receive Date: 20141112
  Receipt Date: 20150511
  Transmission Date: 20150821
  Serious: Yes (Other)
  Sender: FDA-Public Use
  Company Number: US2014GSK017567

PATIENT
  Age: 84 Year
  Sex: Female

DRUGS (1)
  1. TUMS ULTRA [Suspect]
     Active Substance: CALCIUM CARBONATE
     Indication: PAIN
     Dosage: UNK
     Route: 048
     Dates: start: 20141102, end: 20141103

REACTIONS (15)
  - Increased upper airway secretion [None]
  - Nervousness [None]
  - Nausea [None]
  - Feeling jittery [None]
  - Drug administration error [None]
  - Discomfort [None]
  - Product odour abnormal [None]
  - Pruritus [None]
  - Dyspepsia [None]
  - Malaise [None]
  - Muscle spasms [None]
  - Tension [None]
  - Dysgeusia [None]
  - Asthenia [None]
  - Myocardial infarction [None]

NARRATIVE: CASE EVENT DATE: 20141102
